FAERS Safety Report 9328788 (Version 1)
Quarter: 2013Q2

REPORT INFORMATION
  Report Type: Spontaneous
  Country: US (occurrence: US)
  Receive Date: 20130604
  Receipt Date: 20130604
  Transmission Date: 20140414
  Serious: No
  Sender: FDA-Public Use
  Company Number: US-ASTRAZENECA-2013SE35934

PATIENT
  Age: 40 Year
  Sex: Female
  Weight: 70.3 kg

DRUGS (3)
  1. SYMBICORT [Suspect]
     Indication: ASTHMA
     Dosage: 160/4.5 MCGS TWO PUFFS, BID
     Route: 055
     Dates: start: 2012
  2. PREDNISONE [Concomitant]
  3. PROAIR [Concomitant]

REACTIONS (7)
  - Asthma [Unknown]
  - Wheezing [Unknown]
  - Multiple allergies [Unknown]
  - Cough [Unknown]
  - Dysphonia [Unknown]
  - Circumstance or information capable of leading to medication error [Unknown]
  - Drug dose omission [Unknown]
